FAERS Safety Report 5846211-X (Version None)
Quarter: 2008Q3

REPORT INFORMATION
  Report Type: 
  Country: None (occurrence: None)
  Receive Date: 20080813
  Receipt Date: 20080707
  Transmission Date: 20090109
  Serious: Yes (Death, Hospitalization, Congenital Anomaly)
  Sender: FDA-Public Use
  Company Number: ADE2008-0244

PATIENT
  Sex: Female
  Weight: 3.62 kg

DRUGS (6)
  1. FLUOXETINE [Suspect]
     Indication: ANXIETY
     Dosage: 20MG, TRANSPLACENT
     Route: 064
     Dates: start: 20060914
  2. FLUOXETINE [Suspect]
     Indication: PANIC REACTION
     Dosage: 20MG, TRANSPLACENT
     Route: 064
     Dates: start: 20060914
  3. SERTRALINE HYDROCHLORIDE [Suspect]
     Indication: ANXIETY
     Dosage: 50 MG, QD; TRANSPLACENTAL, 100 MG, QD; TRANSPLACENTAL
     Route: 064
     Dates: end: 20060914
  4. SERTRALINE HYDROCHLORIDE [Suspect]
     Indication: PANIC REACTION
     Dosage: 50 MG, QD; TRANSPLACENTAL, 100 MG, QD; TRANSPLACENTAL
     Route: 064
     Dates: end: 20060914
  5. SERTRALINE HYDROCHLORIDE [Suspect]
     Indication: ANXIETY
     Dosage: 50 MG, QD; TRANSPLACENTAL, 100 MG, QD; TRANSPLACENTAL
     Route: 064
     Dates: start: 20060323
  6. SERTRALINE HYDROCHLORIDE [Suspect]
     Indication: PANIC REACTION
     Dosage: 50 MG, QD; TRANSPLACENTAL, 100 MG, QD; TRANSPLACENTAL
     Route: 064
     Dates: start: 20060323

REACTIONS (7)
  - APGAR SCORE LOW [None]
  - BRAIN INJURY [None]
  - CAESAREAN SECTION [None]
  - ENCEPHALITIS [None]
  - MATERNAL DRUGS AFFECTING FOETUS [None]
  - NEONATAL ASPHYXIA [None]
  - NEONATAL DISORDER [None]
